FAERS Safety Report 21982078 (Version 1)
Quarter: 2023Q1

REPORT INFORMATION
  Report Type: Spontaneous
  Country: BG (occurrence: None)
  Receive Date: 20230213
  Receipt Date: 20230213
  Transmission Date: 20230418
  Serious: Yes (Other)
  Sender: FDA-Public Use
  Company Number: 2023A034059

PATIENT
  Age: 37 Year
  Sex: Female

DRUGS (5)
  1. FASENRA [Suspect]
     Active Substance: BENRALIZUMAB
     Indication: Asthma
     Dosage: 30
     Route: 058
     Dates: start: 20210510
  2. FORMOTEROL FUMARATE/BECLOMETASONE DIPROPIONATE [Concomitant]
     Dosage: 100/6 2X2 INHALATIONS
  3. ALBUTEROL [Concomitant]
     Active Substance: ALBUTEROL
  4. TIOTROPIUM BROMIDE [Concomitant]
     Active Substance: TIOTROPIUM BROMIDE
     Dosage: 2 INHALATIONS
  5. FORMOTEROL;GLYCOPYRRONIUM;BUDESONIDE [Concomitant]

REACTIONS (1)
  - Asthma [Recovered/Resolved]

NARRATIVE: CASE EVENT DATE: 20221001
